FAERS Safety Report 24953296 (Version 1)
Quarter: 2025Q1

REPORT INFORMATION
  Report Type: Spontaneous
  Country: CA (occurrence: CA)
  Receive Date: 20250211
  Receipt Date: 20250211
  Transmission Date: 20250409
  Serious: Yes (Hospitalization, Other)
  Sender: CSL BEHRING
  Company Number: CA-BEH-2025194517

PATIENT
  Age: 84 Year
  Sex: Female

DRUGS (3)
  1. HUMAN IMMUNOGLOBULIN G [Suspect]
     Active Substance: HUMAN IMMUNOGLOBULIN G
     Indication: Primary immunodeficiency syndrome
     Dosage: 5 G, QW
     Route: 058
  2. HUMAN IMMUNOGLOBULIN G [Suspect]
     Active Substance: HUMAN IMMUNOGLOBULIN G
     Dosage: 5 G, QWSOLUTION FOR INFUSION
     Route: 058
  3. HUMAN IMMUNOGLOBULIN G [Concomitant]
     Active Substance: HUMAN IMMUNOGLOBULIN G
     Indication: Product used for unknown indication
     Route: 065

REACTIONS (7)
  - Cough [Recovering/Resolving]
  - Cystitis [Recovering/Resolving]
  - Illness [Recovering/Resolving]
  - Oral candidiasis [Recovering/Resolving]
  - Pneumonia [Recovering/Resolving]
  - Sinusitis [Recovering/Resolving]
  - Off label use [Unknown]
